FAERS Safety Report 8906065 (Version 2)
Quarter: 2012Q4

REPORT INFORMATION
  Report Type: 
  Country: US (occurrence: US)
  Receive Date: 20121112
  Receipt Date: 20121123
  Transmission Date: 20130627
  Serious: No
  Sender: FDA-Public Use
  Company Number: US-PFIZER INC-2012278727

PATIENT
  Age: 71 Year
  Sex: Male
  Weight: 81.6 kg

DRUGS (3)
  1. SUTENT [Suspect]
     Indication: METASTATIC RENAL CELL CARCINOMA
     Dosage: 50 mg, 42 day cycle
     Dates: start: 20121020, end: 20121115
  2. METFORMIN [Concomitant]
     Dosage: UNK
  3. GLIPIZIDE [Concomitant]
     Dosage: UNK

REACTIONS (6)
  - Blood pressure increased [Unknown]
  - Renal function test abnormal [Unknown]
  - Abdominal discomfort [Unknown]
  - Oral pain [Unknown]
  - Headache [Unknown]
  - Nausea [Unknown]
